FAERS Safety Report 9233939 (Version 1)
Quarter: 2013Q2

REPORT INFORMATION
  Report Type: Spontaneous
  Country: US (occurrence: US)
  Receive Date: 20130416
  Receipt Date: 20130416
  Transmission Date: 20140414
  Serious: No
  Sender: FDA-Public Use
  Company Number: US-BANPHARM-20120356

PATIENT
  Age: 16 Year
  Sex: Female
  Weight: 64 kg

DRUGS (1)
  1. ALEVE LIQUID GELS 220 MG [Suspect]
     Dosage: 1 DF, WITH FOOD
     Route: 048
     Dates: start: 20121111, end: 20121111

REACTIONS (2)
  - Abdominal discomfort [Recovered/Resolved]
  - Wrong technique in drug usage process [Recovered/Resolved]
